FAERS Safety Report 6419048-0 (Version None)
Quarter: 2009Q4

REPORT INFORMATION
  Report Type: 
  Country: None (occurrence: None)
  Receive Date: 20091028
  Receipt Date: 20091028
  Transmission Date: 20100525
  Serious: No
  Sender: FDA-Public Use
  Company Number: None

PATIENT
  Sex: Female
  Weight: 91.6266 kg

DRUGS (3)
  1. LASIX [Suspect]
     Indication: ATRIAL FLUTTER
     Dosage: 20MG
  2. LASIX [Suspect]
     Indication: CARDIAC FAILURE CONGESTIVE
     Dosage: 20MG
  3. LASIX [Suspect]
     Indication: HYPERTENSION
     Dosage: 20MG

REACTIONS (2)
  - DRUG INEFFECTIVE [None]
  - DYSPNOEA [None]
